FAERS Safety Report 13911190 (Version 12)
Quarter: 2021Q2

REPORT INFORMATION
  Report Type: Report from Study
  Country: JP (occurrence: JP)
  Receive Date: 20170828
  Receipt Date: 20210412
  Transmission Date: 20210716
  Serious: Yes (Life-Threatening, Hospitalization, Other)
  Sender: FDA-Public Use
  Company Number: JP-BRISTOL-MYERS SQUIBB COMPANY-BMS-2017-075235

PATIENT
  Age: 75 Year
  Sex: Male
  Weight: 55 kg

DRUGS (6)
  1. YERVOY [Suspect]
     Active Substance: IPILIMUMAB
     Indication: MALIGNANT MELANOMA
     Dosage: 170 MG, BID
     Route: 041
     Dates: start: 20170613, end: 20170725
  2. RELVAR ELLIPTA [FLUTICASONE FUROATE;VILANTEROL TRIFENATATE] [Concomitant]
     Active Substance: FLUTICASONE FUROATE\VILANTEROL TRIFENATATE
     Indication: PRODUCT USED FOR UNKNOWN INDICATION
     Dosage: UNK
     Route: 065
  3. AMLODIPIN [AMLODIPINE BESILATE] [Concomitant]
     Active Substance: AMLODIPINE BESYLATE
     Indication: PRODUCT USED FOR UNKNOWN INDICATION
     Dosage: UNK
     Route: 065
  4. ZACRAS COMBINATION [Concomitant]
     Active Substance: AMLODIPINE BESYLATE\AZILSARTAN
     Indication: PRODUCT USED FOR UNKNOWN INDICATION
     Dosage: UNK
     Route: 065
  5. NIVOLUMAB [Suspect]
     Active Substance: NIVOLUMAB
     Indication: MALIGNANT MELANOMA
     Dosage: 170 MILLIGRAM, Q2WK
     Route: 041
     Dates: start: 20161005
  6. CRESTOR [Concomitant]
     Active Substance: ROSUVASTATIN CALCIUM
     Indication: PRODUCT USED FOR UNKNOWN INDICATION
     Dosage: UNK
     Route: 065

REACTIONS (10)
  - Gastrointestinal necrosis [Recovered/Resolved]
  - Colitis [Unknown]
  - Septic shock [Recovered/Resolved]
  - Hypothyroidism [Recovering/Resolving]
  - Off label use [Unknown]
  - Hepatotoxicity [Recovering/Resolving]
  - Gastrointestinal perforation [Recovered/Resolved]
  - Adrenal insufficiency [Recovering/Resolving]
  - Peritonitis [Recovered/Resolved]
  - Disseminated intravascular coagulation [Recovered/Resolved]

NARRATIVE: CASE EVENT DATE: 20170510
